FAERS Safety Report 8865761 (Version 1)
Quarter: 2012Q4

REPORT INFORMATION
  Report Type: 
  Country: US (occurrence: US)
  Receive Date: 20121024
  Receipt Date: 20121024
  Transmission Date: 20130627
  Serious: No
  Sender: FDA-Public Use
  Company Number: US-AMGEN-USASP2012000994

PATIENT
  Age: 64 Year
  Sex: Female

DRUGS (8)
  1. ENBREL [Suspect]
     Indication: PRODUCT USED FOR UNKNOWN INDICATION
     Dosage: 50 mg, qwk
     Route: 058
  2. NAPROSYN [Concomitant]
     Dosage: 250 mg, UNK
  3. METHOTREXATE [Concomitant]
     Dosage: 2.5 mg, UNK
  4. LISINOPRIL [Concomitant]
     Dosage: 2.5 mg, UNK
  5. FOLIC ACID [Concomitant]
     Dosage: 1 mg, UNK
  6. CALCIUM [Concomitant]
     Dosage: UNK DF, UNK
  7. ASPIRIN [Concomitant]
     Dosage: 81 mg, UNK
  8. MULTIVITAMIN                       /00097801/ [Concomitant]

REACTIONS (8)
  - Asthenopia [Recovered/Resolved]
  - Ocular hyperaemia [Unknown]
  - Dry eye [Unknown]
  - Therapeutic response decreased [Unknown]
  - Malaise [Unknown]
  - Pain [Unknown]
  - Oedema peripheral [Unknown]
  - Nasopharyngitis [Recovered/Resolved]
